FAERS Safety Report 9801439 (Version 3)
Quarter: 2014Q1

REPORT INFORMATION
  Report Type: Spontaneous
  Country: CL (occurrence: CL)
  Receive Date: 20140107
  Receipt Date: 20140110
  Transmission Date: 20141002
  Serious: Yes (Other)
  Sender: FDA-Public Use
  Company Number: CL-PFIZER INC-2014003457

PATIENT
  Age: 72 Year
  Sex: Female

DRUGS (7)
  1. NORVASC [Suspect]
     Indication: CORONARY ARTERY DISEASE
     Dosage: 5 MG, 1X/DAY
     Route: 048
     Dates: start: 200001
  2. NORVASC [Suspect]
     Indication: ARTERIAL STENT INSERTION
  3. BEZAFIBRATE [Concomitant]
  4. ECOTRIN [Concomitant]
     Dosage: 325 MG, 1X/DAY
     Dates: start: 2000
  5. ENALTEN [Concomitant]
     Dosage: 5 MG, 2X/DAY
  6. FAMOTIDINE [Concomitant]
     Dosage: 1 DF, 1X/DAY
  7. PREDNISONE [Concomitant]
     Dosage: 5 MG, 1X/DAY
     Dates: start: 1993

REACTIONS (7)
  - Cardiac disorder [Recovered/Resolved]
  - Myocardial infarction [Recovered/Resolved]
  - Coronary artery bypass [Not Recovered/Not Resolved]
  - Coronary artery disease [Not Recovered/Not Resolved]
  - Dyspnoea [Not Recovered/Not Resolved]
  - Dizziness [Recovered/Resolved]
  - Vomiting [Recovered/Resolved]
